FAERS Safety Report 15411183 (Version 9)
Quarter: 2025Q4

REPORT INFORMATION
  Report Type: Spontaneous
  Country: EU (occurrence: EU)
  Receive Date: 20180921
  Receipt Date: 20251002
  Transmission Date: 20260117
  Serious: Yes (Hospitalization, Other)
  Sender: AUROBINDO
  Company Number: EU-AUROBINDO-AUR-APL-2018-044976

PATIENT
  Age: 58 Year
  Sex: Female

DRUGS (18)
  1. METFORMIN [Suspect]
     Active Substance: METFORMIN HYDROCHLORIDE
     Indication: Type 2 diabetes mellitus
     Dosage: 1700 MILLIGRAM, ONCE A DAY
     Route: 065
  2. METFORMIN [Suspect]
     Active Substance: METFORMIN HYDROCHLORIDE
     Dosage: 850 MILLIGRAM,0.5 DAY FOR OVER 3 YEARS
     Route: 065
  3. METFORMIN [Suspect]
     Active Substance: METFORMIN HYDROCHLORIDE
     Route: 065
  4. PREGABALIN [Suspect]
     Active Substance: PREGABALIN
     Indication: Scoliosis
     Dosage: 75 MILLIGRAM, TWO TIMES A DAY (FOR OVER 3 YEARS, TWICE DAILY)
     Route: 048
  5. PREGABALIN [Suspect]
     Active Substance: PREGABALIN
     Indication: Musculoskeletal pain
     Dosage: 150 MILLIGRAM, ONCE A DAY (75 MG, 2X PER DAY)
     Route: 048
  6. PREGABALIN [Suspect]
     Active Substance: PREGABALIN
     Indication: Pain
  7. PREGABALIN [Suspect]
     Active Substance: PREGABALIN
     Indication: Back pain
  8. IOPROMIDE [Interacting]
     Active Substance: IOPROMIDE
     Indication: Abdominal discomfort
     Dosage: UNK
     Route: 042
  9. IOPROMIDE [Interacting]
     Active Substance: IOPROMIDE
     Indication: Computerised tomogram abdomen
  10. IOPROMIDE [Interacting]
     Active Substance: IOPROMIDE
     Indication: Scan with contrast
  11. ENALAPRIL [Concomitant]
     Active Substance: ENALAPRIL
     Indication: Chronic kidney disease
     Dosage: 20 MILLIGRAM, ONCE A DAY,FOR OVER 3 YEARS
     Route: 005
  12. ENALAPRIL [Concomitant]
     Active Substance: ENALAPRIL
     Indication: Hypertension
  13. EZETIMIBE [Concomitant]
     Active Substance: EZETIMIBE
     Indication: Dyslipidaemia
     Dosage: 10 MILLIGRAM, ONCE A DAY, ,FOR OVER 3 YEARS
     Route: 065
  14. EZETIMIBE [Concomitant]
     Active Substance: EZETIMIBE
     Dosage: 20 MILLIGRAM, ONCE A DAY
     Route: 065
  15. FLUOXETINE [Concomitant]
     Active Substance: FLUOXETINE HYDROCHLORIDE
     Indication: Depression
     Dosage: 20 MILLIGRAM, ONCE A DAY,FOR OVER 3 YEARS
     Route: 065
  16. SIMVASTATIN [Concomitant]
     Active Substance: SIMVASTATIN
     Indication: Dyslipidaemia
     Dosage: 20 MILLIGRAM, ONCE A DAY, FOR OVER 3 YEARS
     Route: 016
  17. SITAGLIPTIN [Concomitant]
     Active Substance: SITAGLIPTIN
     Indication: Type 2 diabetes mellitus
     Dosage: 100 MILLIGRAM, ONCE A DAY
     Route: 065
  18. SITAGLIPTIN [Concomitant]
     Active Substance: SITAGLIPTIN
     Dosage: 50 MILLIGRAM, ONCE A DAY (FOR OVER 3 YEARS, 0.5 DAY)
     Route: 065

REACTIONS (12)
  - Parkinsonism [Recovered/Resolved]
  - Bradyphrenia [Recovered/Resolved]
  - Reduced facial expression [Recovered/Resolved]
  - Musculoskeletal stiffness [Recovered/Resolved]
  - Malaise [Recovered/Resolved]
  - Gait disturbance [Recovered/Resolved]
  - Somnolence [Recovered/Resolved]
  - Acute kidney injury [Recovered/Resolved]
  - Labelled drug-disease interaction medication error [Unknown]
  - Abdominal discomfort [Unknown]
  - Product administration error [Unknown]
  - Gait inability [Unknown]
